FAERS Safety Report 20809582 (Version 2)
Quarter: 2022Q3

REPORT INFORMATION
  Report Type: Spontaneous
  Country: US (occurrence: US)
  Receive Date: 20220510
  Receipt Date: 20220928
  Transmission Date: 20221027
  Serious: No
  Sender: FDA-Public Use
  Company Number: US-HBP-2022US026318

PATIENT
  Age: 35 Year
  Sex: Male

DRUGS (3)
  1. MECHLORETHAMINE [Suspect]
     Active Substance: MECHLORETHAMINE
     Indication: Cutaneous T-cell lymphoma stage I
     Dosage: UNK, 2/WEEK
     Route: 061
  2. MECHLORETHAMINE [Suspect]
     Active Substance: MECHLORETHAMINE
     Dosage: UNK, 3/WEEK
     Route: 061
     Dates: start: 202004, end: 202106
  3. MECHLORETHAMINE [Suspect]
     Active Substance: MECHLORETHAMINE
     Dosage: UNK, 1/WEEK ALTERNATING MAINTENANCE WITH CL/MC GEL AND NBUVB THERAPIES
     Route: 061
     Dates: start: 202106

REACTIONS (2)
  - Skin lesion [Recovered/Resolved]
  - Off label use [Unknown]

NARRATIVE: CASE EVENT DATE: 20220401
